FAERS Safety Report 6852765-7 (Version None)
Quarter: 2010Q3

REPORT INFORMATION
  Report Type: 
  Country: None (occurrence: None)
  Receive Date: 20100717
  Receipt Date: 20081028
  Transmission Date: 20110219
  Serious: No
  Sender: FDA-Public Use
  Company Number: US-PFIZER INC-2007097450

PATIENT
  Sex: Female
  Weight: 72.7 kg

DRUGS (4)
  1. CHANTIX [Suspect]
     Indication: SMOKING CESSATION THERAPY
     Dates: start: 20071110
  2. LIPITOR [Concomitant]
  3. NEXIUM [Concomitant]
  4. METOPROLOL [Concomitant]

REACTIONS (5)
  - FEELING ABNORMAL [None]
  - NAUSEA [None]
  - PRODUCT QUALITY ISSUE [None]
  - UNEVALUABLE EVENT [None]
  - VOMITING [None]
